FAERS Safety Report 5749990-5 (Version None)
Quarter: 2008Q2

REPORT INFORMATION
  Report Type: 
  Country: None (occurrence: None)
  Receive Date: 20080527
  Receipt Date: 20080515
  Transmission Date: 20081010
  Serious: Yes (Other)
  Sender: FDA-Public Use
  Company Number: JP-ROCHE-545434

PATIENT
  Sex: Female
  Weight: 51 kg

DRUGS (7)
  1. PEGASYS [Suspect]
     Indication: HEPATITIS C
     Route: 058
     Dates: start: 20070705, end: 20070801
  2. PEGASYS [Suspect]
     Route: 058
     Dates: start: 20070823, end: 20080103
  3. PEGASYS [Suspect]
     Route: 058
     Dates: start: 20080117
  4. COPEGUS [Suspect]
     Indication: HEPATITIS C
     Dosage: DIVIDED INTO 2 DOSES
     Route: 048
     Dates: start: 20070705, end: 20070822
  5. COPEGUS [Suspect]
     Route: 048
     Dates: start: 20070823
  6. CALONAL [Concomitant]
     Dosage: TAKEN AS NEEDED
     Route: 048
     Dates: start: 20070705
  7. ALLELOCK [Concomitant]
     Route: 048
     Dates: start: 20071227

REACTIONS (1)
  - DELIRIUM [None]
